FAERS Safety Report 8172572-5 (Version None)
Quarter: 2012Q1

REPORT INFORMATION
  Report Type: 
  Country: None (occurrence: None)
  Receive Date: 20120229
  Receipt Date: 20120223
  Transmission Date: 20120608
  Serious: Yes (Other)
  Sender: FDA-Public Use
  Company Number: US-PFIZER INC-2012050907

PATIENT
  Sex: Female

DRUGS (2)
  1. EFFEXOR XR [Suspect]
     Dosage: 300 MG
  2. EFFEXOR XR [Suspect]
     Dosage: 225 MG
     Dates: start: 20070101

REACTIONS (2)
  - DEPRESSION [None]
  - SUICIDAL IDEATION [None]
